FAERS Safety Report 10519215 (Version 1)
Quarter: 2014Q4

REPORT INFORMATION
  Report Type: Spontaneous
  Country: US (occurrence: None)
  Receive Date: 20141014
  Receipt Date: 20141014
  Transmission Date: 20150528
  Serious: Yes (Hospitalization)
  Sender: FDA-Public Use
  Company Number: None

PATIENT
  Age: 9 Month
  Sex: Female
  Weight: 9.3 kg

DRUGS (1)
  1. BABY TEETHING [Suspect]
     Active Substance: ARABICA COFFEE BEAN\ATROPA BELLADONNA\CALCIUM PHOSPHATE\CHAMOMILE
     Indication: TEETHING
     Dates: start: 20141010, end: 20141010

REACTIONS (7)
  - Diarrhoea [None]
  - Nausea [None]
  - Seizure [None]
  - Head injury [None]
  - Pyrexia [None]
  - Dehydration [None]
  - Vomiting [None]

NARRATIVE: CASE EVENT DATE: 20141012
